FAERS Safety Report 6063055-7 (Version None)
Quarter: 2009Q1

REPORT INFORMATION
  Report Type: 
  Country: None (occurrence: None)
  Receive Date: 20090203
  Receipt Date: 20090120
  Transmission Date: 20090719
  Serious: Yes (Other)
  Sender: FDA-Public Use
  Company Number: PHNU2007DE04100

PATIENT
  Sex: Male

DRUGS (4)
  1. FLUVASTATIN [Suspect]
     Indication: HYPERCHOLESTEROLAEMIA
     Dosage: 80 MG, QD
     Route: 048
     Dates: start: 19970101, end: 20071205
  2. ACE INHIBITOR NOS [Concomitant]
  3. BETA BLOCKING AGENTS [Concomitant]
  4. ASPIRIN [Concomitant]

REACTIONS (5)
  - MALAISE [None]
  - MUSCLE SPASMS [None]
  - MYALGIA [None]
  - OSTEOARTHRITIS [None]
  - RED BLOOD CELL SEDIMENTATION RATE DECREASED [None]
